FAERS Safety Report 7781542-8 (Version None)
Quarter: 2011Q3

REPORT INFORMATION
  Report Type: 
  Country: None (occurrence: None)
  Receive Date: 20110923
  Receipt Date: 20110907
  Transmission Date: 20111222
  Serious: Yes (Disabling)
  Sender: FDA-Public Use
  Company Number: 2011AP001907

PATIENT
  Age: 82 Year
  Sex: Female

DRUGS (17)
  1. ALENDRONATE SODIUM [Suspect]
     Indication: PRODUCT USED FOR UNKNOWN INDICATION
  2. ACETAMINOPHEN [Concomitant]
  3. TOLBUTAMIDE [Concomitant]
  4. SENNA ALEXANDRINA (SENNA ALEXANDRINA) [Concomitant]
  5. ZOPICLONE (ZOPICLONE) [Concomitant]
  6. CITALOPRAM HYDROBROMIDE [Concomitant]
  7. DOMPERIDONE (DOMPERIDONE) [Concomitant]
  8. LISINOPRL (LISINOPRIL) [Concomitant]
  9. METFORMIN HCL [Concomitant]
  10. AMLODIPINE [Concomitant]
  11. FUROSEMIDE [Concomitant]
  12. LANSOPRAZOLE [Concomitant]
  13. LETROZOLE [Concomitant]
  14. ASPIRIN [Concomitant]
  15. ATENOLOL [Concomitant]
  16. SIMVASTATIN [Concomitant]
  17. ARICEPT [Suspect]
     Indication: PRODUCT USED FOR UNKNOWN INDICATION
     Dosage: 10 MG;QD, PO
     Route: 048
     Dates: start: 20060101

REACTIONS (3)
  - NAUSEA [None]
  - VOMITING [None]
  - WEIGHT DECREASED [None]
